FAERS Safety Report 13380177 (Version 2)
Quarter: 2017Q2

REPORT INFORMATION
  Report Type: Report from Study
  Country: US (occurrence: US)
  Receive Date: 20170328
  Receipt Date: 20170404
  Transmission Date: 20170830
  Serious: No
  Sender: FDA-Public Use
  Company Number: US-AMGEN-USASL2017044304

PATIENT
  Age: 50 Year
  Sex: Male

DRUGS (3)
  1. TYLENOL [Concomitant]
     Active Substance: ACETAMINOPHEN
     Indication: ARTHRITIS
     Dosage: UNK
  2. ENBREL [Suspect]
     Active Substance: ETANERCEPT
     Indication: ANKYLOSING SPONDYLITIS
     Dosage: 50 MG, QWK
     Route: 065
     Dates: start: 201702, end: 201703
  3. TYLENOL [Concomitant]
     Active Substance: ACETAMINOPHEN
     Indication: ANKYLOSING SPONDYLITIS

REACTIONS (12)
  - Headache [Not Recovered/Not Resolved]
  - Erythema [Unknown]
  - Chills [Unknown]
  - Pyrexia [Unknown]
  - Photophobia [Unknown]
  - Decreased appetite [Unknown]
  - Hair disorder [Not Recovered/Not Resolved]
  - Musculoskeletal disorder [Unknown]
  - Feeling abnormal [Not Recovered/Not Resolved]
  - Hyperaesthesia [Unknown]
  - Insomnia [Unknown]
  - Hyperhidrosis [Unknown]

NARRATIVE: CASE EVENT DATE: 2017
